FAERS Safety Report 18464180 (Version 1)
Quarter: 2020Q4

REPORT INFORMATION
  Report Type: Report from Study
  Country: FR (occurrence: FR)
  Receive Date: 20201104
  Receipt Date: 20201104
  Transmission Date: 20210114
  Serious: Yes (Life-Threatening, Other)
  Sender: FDA-Public Use
  Company Number: FR-JAZZ-2020-FR-003463

PATIENT

DRUGS (1)
  1. DEFITELIO [Suspect]
     Active Substance: DEFIBROTIDE SODIUM
     Indication: VENOOCCLUSIVE DISEASE
     Dosage: 25.28 MG/KG/DAY
     Route: 042
     Dates: start: 20191120, end: 20191214

REACTIONS (9)
  - Pseudomonal sepsis [Recovering/Resolving]
  - Septic embolus [Recovering/Resolving]
  - Urinary tract infection [Unknown]
  - Off label use [Unknown]
  - Neutropenia [Unknown]
  - Acute graft versus host disease [Unknown]
  - Perineal cellulitis [Recovering/Resolving]
  - Multiple-drug resistance [Unknown]
  - Cytomegalovirus infection reactivation [Unknown]

NARRATIVE: CASE EVENT DATE: 20191120
